FAERS Safety Report 6456874-6 (Version None)
Quarter: 2009Q4

REPORT INFORMATION
  Report Type: 
  Country: None (occurrence: None)
  Receive Date: 20091120
  Receipt Date: 20091116
  Transmission Date: 20100525
  Serious: Yes (Other)
  Sender: FDA-Public Use
  Company Number: APP200900587

PATIENT

DRUGS (6)
  1. HEPARIN SODIUM INJECTION [Suspect]
     Indication: ANGIOPLASTY
     Dosage: 70 UNITS/KG
     Dates: start: 20090908
  2. HEPARIN SODIUM INJECTION [Suspect]
  3. HEPARIN SODIUM INJECTION [Suspect]
  4. HEPARIN SODIUM INJECTION [Suspect]
  5. HEPARIN SODIUM INJECTION [Suspect]
  6. INTEGRILIN [Suspect]
     Indication: ANGIOPLASTY

REACTIONS (5)
  - COAGULATION TIME PROLONGED [None]
  - DRUG EFFECT INCREASED [None]
  - HYPOTENSION [None]
  - PERINEPHRIC COLLECTION [None]
  - RETROPERITONEAL HAEMATOMA [None]
